FAERS Safety Report 22322907 (Version 1)
Quarter: 2023Q2

REPORT INFORMATION
  Report Type: Spontaneous
  Country: US (occurrence: US)
  Receive Date: 20230516
  Receipt Date: 20230516
  Transmission Date: 20230722
  Serious: No
  Sender: FDA-Public Use
  Company Number: US-APOTEX-2023AP002396

PATIENT
  Sex: Female

DRUGS (2)
  1. AZELASTINE HYDROCHLORIDE [Suspect]
     Active Substance: AZELASTINE HYDROCHLORIDE
     Indication: Multiple allergies
     Dosage: 2 GTT DROPS, BID
     Route: 047
  2. SYSTANE HYDRATION PF PRESERVATIVE FREE [Concomitant]
     Active Substance: POLYETHYLENE GLYCOL 400\PROPYLENE GLYCOL
     Indication: Multiple allergies
     Dosage: UNK, QD
     Route: 065

REACTIONS (7)
  - Product dose omission issue [Unknown]
  - Product design issue [Unknown]
  - Device difficult to use [Unknown]
  - Device use issue [Unknown]
  - No adverse event [Unknown]
  - Product delivery mechanism issue [Unknown]
  - Product quality issue [Unknown]
